FAERS Safety Report 13247896 (Version 4)
Quarter: 2017Q2

REPORT INFORMATION
  Report Type: Spontaneous
  Country: US (occurrence: US)
  Receive Date: 20170217
  Receipt Date: 20170512
  Transmission Date: 20170830
  Serious: Yes (Disabling, Other)
  Sender: FDA-Public Use
  Company Number: US-REGENERON PHARMACEUTICALS, INC.-2017-11810

PATIENT

DRUGS (8)
  1. AVASTIN [Suspect]
     Active Substance: BEVACIZUMAB
     Indication: MACULAR DEGENERATION
     Dosage: 10 YEARS, OD
     Route: 031
  2. EYLEA [Suspect]
     Active Substance: AFLIBERCEPT
     Indication: NEOVASCULAR AGE-RELATED MACULAR DEGENERATION
     Dosage: 2 MG/0.05 ML, LEFT EYE
     Route: 031
     Dates: start: 20160413, end: 20160413
  3. PRED FORTE [Concomitant]
     Active Substance: PREDNISOLONE ACETATE
     Indication: PRODUCT USED FOR UNKNOWN INDICATION
  4. EYLEA [Suspect]
     Active Substance: AFLIBERCEPT
     Dosage: 2 MG/0.05 ML, LEFT EYE
     Route: 031
     Dates: start: 20170206, end: 20170206
  5. BESIVANCE [Concomitant]
     Active Substance: BESIFLOXACIN
     Indication: PRODUCT USED FOR UNKNOWN INDICATION
  6. EYLEA [Suspect]
     Active Substance: AFLIBERCEPT
     Dosage: 2 MG/0.05 ML, RIGHT EYE
     Route: 031
     Dates: start: 201701, end: 201701
  7. LUCENTIS [Suspect]
     Active Substance: RANIBIZUMAB
     Indication: MACULAR DEGENERATION
     Dosage: HAD 3 TREATMENTS, OD
     Route: 031
  8. EYLEA [Suspect]
     Active Substance: AFLIBERCEPT
     Dosage: 2 MG/0.05 ML, EVERY 4 OR 5 WEEKS
     Route: 031
     Dates: start: 20170306, end: 20170306

REACTIONS (17)
  - Viral upper respiratory tract infection [Recovering/Resolving]
  - Hypersensitivity [Unknown]
  - Visual acuity reduced [Unknown]
  - Herpes zoster [Recovered/Resolved]
  - Visual impairment [Unknown]
  - Photophobia [Unknown]
  - Photopsia [Unknown]
  - Cataract [Recovered/Resolved]
  - Vision blurred [Recovering/Resolving]
  - Viral infection [Recovered/Resolved]
  - Dry eye [Unknown]
  - Drug dose omission [Unknown]
  - Eye pain [Recovered/Resolved]
  - Blindness [Unknown]
  - Endophthalmitis [Recovered/Resolved]
  - Vitreous haze [Unknown]
  - Discomfort [Unknown]

NARRATIVE: CASE EVENT DATE: 2016
